FAERS Safety Report 5655927-X (Version None)
Quarter: 2008Q1

REPORT INFORMATION
  Report Type: 
  Country: None (occurrence: None)
  Receive Date: 20080307
  Receipt Date: 20080225
  Transmission Date: 20080703
  Serious: Yes (Hospitalization, Other)
  Sender: FDA-Public Use
  Company Number: US-PFIZER INC-2008017500

PATIENT
  Age: 6 Year
  Sex: Female
  Weight: 22 kg

DRUGS (4)
  1. DEPO-MEDROL [Suspect]
     Indication: ASTHMA PROPHYLAXIS
     Route: 042
     Dates: start: 20080224, end: 20080225
  2. HYDROCORTISONE [Concomitant]
  3. VASELINE [Concomitant]
  4. ALL OTHER THERAPEUTIC PRODUCTS [Concomitant]

REACTIONS (4)
  - BLOOD PH DECREASED [None]
  - BLOOD UREA ABNORMAL [None]
  - DEHYDRATION [None]
  - WRONG DRUG ADMINISTERED [None]
